FAERS Safety Report 5146443-2 (Version None)
Quarter: 2006Q4

REPORT INFORMATION
  Report Type: 
  Country: None (occurrence: None)
  Receive Date: 20061102
  Receipt Date: 20061026
  Transmission Date: 20070319
  Serious: Yes (Hospitalization, Other)
  Sender: FDA-Public Use
  Company Number: 2006101852

PATIENT
  Age: 47 Year
  Sex: Female
  Weight: 127.0072 kg

DRUGS (11)
  1. GEODON [Suspect]
     Indication: MANIA
     Dosage: 40 MG (40 MG, 1 IN 1 D)
     Dates: start: 20060902
  2. LITHIUM CARBONATE [Concomitant]
  3. DEPAKOTE [Concomitant]
  4. NAVANE (THIOTHYIXENE) [Concomitant]
  5. ALL OTHER THERAPEUTIC PRODUCTS (ALL OTHER THERAPEUTIC PRODUCTS) [Concomitant]
  6. ZYPREXA [Concomitant]
  7. PAXIL [Concomitant]
  8. THYROID TAB [Concomitant]
  9. CLONAPIN (CLONAZEPAM) [Concomitant]
  10. MULTI-VITAMINS [Concomitant]
  11. CALCIUM (CALCIUM [Concomitant]

REACTIONS (8)
  - AGGRESSION [None]
  - BLOOD THYROID STIMULATING HORMONE INCREASED [None]
  - EAR INFECTION [None]
  - HYPOAESTHESIA [None]
  - THYROID DISORDER [None]
  - THYROXINE DECREASED [None]
  - VISUAL DISTURBANCE [None]
  - WEIGHT DECREASED [None]
